FAERS Safety Report 19806568 (Version 1)
Quarter: 2021Q3

REPORT INFORMATION
  Report Type: Report from Study
  Country: IN (occurrence: IN)
  Receive Date: 20210909
  Receipt Date: 20210909
  Transmission Date: 20211014
  Serious: Yes (Death, Hospitalization)
  Sender: FDA-Public Use
  Company Number: NVSC2020IN226286

PATIENT
  Age: 80 Year
  Sex: Male
  Weight: 61 kg

DRUGS (1)
  1. VYMADA [Suspect]
     Active Substance: SACUBITRIL\VALSARTAN
     Indication: CARDIAC FAILURE CONGESTIVE
     Dosage: 50 MG, BID
     Route: 048
     Dates: start: 20200302

REACTIONS (2)
  - Dizziness [Not Recovered/Not Resolved]
  - COVID-19 [Fatal]

NARRATIVE: CASE EVENT DATE: 20200802
